FAERS Safety Report 25548888 (Version 1)
Quarter: 2025Q3

REPORT INFORMATION
  Report Type: Spontaneous
  Country: VN (occurrence: VN)
  Receive Date: 20250714
  Receipt Date: 20250714
  Transmission Date: 20251021
  Serious: Yes (Other)
  Sender: CHEPLAPHARM
  Company Number: VN-CHEPLA-2025008558

PATIENT
  Sex: Male

DRUGS (16)
  1. GANCICLOVIR [Suspect]
     Active Substance: GANCICLOVIR
     Indication: Cytomegalovirus infection
     Route: 042
  2. BUSULFAN [Suspect]
     Active Substance: BUSULFAN
     Indication: Bone marrow conditioning regimen
     Dosage: 1.2 MG/KG EVERY 6 HOURS FOR 4 DAYS?DAILY DOSE: 4.8 MILLIGRAM/KG
     Route: 042
  3. FLUDARABINE [Suspect]
     Active Substance: FLUDARABINE PHOSPHATE
     Indication: Bone marrow conditioning regimen
     Dosage: 40 MG/M2/DAY FOR 4 DAYS?DAILY DOSE: 40 MILLIGRAM/M?
     Route: 042
  4. FLUDARABINE [Suspect]
     Active Substance: FLUDARABINE PHOSPHATE
     Indication: Bone marrow conditioning regimen
     Dosage: 30 MG/M2/DAY FOR 5 DAYS?DAILY DOSE: 30 MILLIGRAM/M?
     Route: 042
  5. THYMOCYTE IMMUNE GLOBULIN NOS [Suspect]
     Active Substance: THYMOCYTE IMMUNE GLOBULIN NOS
     Indication: Bone marrow conditioning regimen
     Dosage: 15 MG/KG/DAY; FOR 4 DAYS?DAILY DOSE: 15 MILLIGRAM/KG
  6. THYMOCYTE IMMUNE GLOBULIN NOS [Suspect]
     Active Substance: THYMOCYTE IMMUNE GLOBULIN NOS
     Indication: Bone marrow conditioning regimen
     Dosage: 15 MG/KG/DAY FOR 2 DAYS?DAILY DOSE: 15 MILLIGRAM/KG
  7. CYCLOSPORINE [Suspect]
     Active Substance: CYCLOSPORINE
     Indication: Prophylaxis against graft versus host disease
  8. MYCOPHENOLATE MOFETIL [Suspect]
     Active Substance: MYCOPHENOLATE MOFETIL
     Indication: Prophylaxis against graft versus host disease
  9. MELPHALAN [Suspect]
     Active Substance: MELPHALAN
     Dosage: 70 MG/M2 EVERY 12 HOURS FOR 1 DAY?DAILY DOSE: 140 MILLIGRAM/M?
  10. RITUXIMAB [Suspect]
     Active Substance: RITUXIMAB
  11. FOSCARNET [Suspect]
     Active Substance: FOSCARNET
  12. CYCLOPHOSPHAMIDE [Suspect]
     Active Substance: CYCLOPHOSPHAMIDE
     Dosage: 50 MG/KG/DAY FOR 2 DAYS (DAYS +3 AND +4)?DAILY DOSE: 50 MILLIGRAM/KG
  13. TACROLIMUS [Suspect]
     Active Substance: TACROLIMUS
  14. SULFAMETHOXAZOLE\TRIMETHOPRIM [Suspect]
     Active Substance: SULFAMETHOXAZOLE\TRIMETHOPRIM
     Indication: Pneumocystis jirovecii infection
  15. HUMAN IMMUNOGLOBULIN G [Suspect]
     Active Substance: HUMAN IMMUNOGLOBULIN G
     Indication: Wiskott-Aldrich syndrome
     Route: 042
  16. HUMAN IMMUNOGLOBULIN G [Suspect]
     Active Substance: HUMAN IMMUNOGLOBULIN G
     Indication: Wiskott-Aldrich syndrome
     Dosage: IVIG THERAPY AT 500 MG/KG EVERY 4 WEEKS FOR 12 MONTHS POSTTRANSPLANT.
     Route: 042

REACTIONS (8)
  - Cytomegalovirus infection reactivation [Recovering/Resolving]
  - Pancytopenia [Recovered/Resolved]
  - Transplant failure [Recovered/Resolved]
  - Epstein-Barr virus infection reactivation [Recovered/Resolved]
  - Febrile neutropenia [Recovered/Resolved]
  - Cystitis haemorrhagic [Recovered/Resolved]
  - Skin infection [Unknown]
  - Off label use [Unknown]
